FAERS Safety Report 5150267-X (Version None)
Quarter: 2006Q4

REPORT INFORMATION
  Report Type: 
  Country: None (occurrence: None)
  Receive Date: 20061114
  Receipt Date: 20060303
  Transmission Date: 20070319
  Serious: Yes (Hospitalization, Other)
  Sender: FDA-Public Use
  Company Number: FR-BAYER-200610237BFR

PATIENT
  Age: 55 Year
  Sex: Male
  Weight: 65 kg

DRUGS (9)
  1. SORAFENIB [Suspect]
     Indication: MALIGNANT MELANOMA
     Dosage: TOTAL DAILY DOSE: 800 MG  UNIT DOSE: 200 MG
     Route: 048
     Dates: start: 20060128, end: 20060228
  2. SORAFENIB [Suspect]
     Dosage: TOTAL DAILY DOSE: 400 MG  UNIT DOSE: 200 MG
     Route: 048
     Dates: start: 20060301, end: 20060301
  3. SORAFENIB [Suspect]
     Dosage: TOTAL DAILY DOSE: 800 MG  UNIT DOSE: 200 MG
     Route: 048
     Dates: start: 20060401
  4. SORAFENIB [Suspect]
     Dosage: TOTAL DAILY DOSE: 400 MG  UNIT DOSE: 200 MG
     Route: 048
     Dates: start: 20060331, end: 20060331
  5. DACARBAZINE [Suspect]
     Indication: METASTATIC MALIGNANT MELANOMA
     Dosage: UNIT DOSE: 1000 MG/M2
     Route: 042
     Dates: start: 20060217, end: 20060217
  6. DACARBAZINE [Suspect]
     Dosage: UNIT DOSE: 1000 MG/M2
     Route: 042
     Dates: start: 20060227, end: 20060227
  7. TEMERIT [Concomitant]
     Indication: HYPERTENSION
     Route: 048
     Dates: start: 20060107
  8. EFFERALGAN [Concomitant]
     Indication: PYREXIA
     Route: 048
     Dates: start: 20060202
  9. FLAMAZINE [Concomitant]
     Indication: UNEVALUABLE EVENT
     Dates: start: 20060206, end: 20060201

REACTIONS (7)
  - ANAEMIA [None]
  - ANOREXIA [None]
  - ASTHENIA [None]
  - DISEASE PROGRESSION [None]
  - EPISTAXIS [None]
  - NEUTROPENIA [None]
  - THROMBOCYTOPENIA [None]
